FAERS Safety Report 25632399 (Version 1)
Quarter: 2025Q3

REPORT INFORMATION
  Report Type: Spontaneous
  Country: US (occurrence: US)
  Receive Date: 20250801
  Receipt Date: 20250801
  Transmission Date: 20251020
  Serious: No
  Sender: VERTEX
  Company Number: US-VERTEX PHARMACEUTICALS DOOEL SKOPJ-2025-012209

PATIENT
  Sex: Male

DRUGS (1)
  1. TRIKAFTA [Suspect]
     Active Substance: ELEXACAFTOR\IVACAFTOR\TEZACAFTOR
     Indication: Cystic fibrosis
     Route: 048

REACTIONS (6)
  - Mental disorder [Unknown]
  - Eating disorder [Unknown]
  - Body dysmorphic disorder [Unknown]
  - Acute stress disorder [Unknown]
  - Intentional self-injury [Unknown]
  - Abdominal distension [Not Recovered/Not Resolved]
